FAERS Safety Report 20130772 (Version 3)
Quarter: 2022Q1

REPORT INFORMATION
  Report Type: Spontaneous
  Country: JP (occurrence: JP)
  Receive Date: 20211130
  Receipt Date: 20220224
  Transmission Date: 20220423
  Serious: Yes (Hospitalization, Other)
  Sender: FDA-Public Use
  Company Number: JP-BRISTOL-MYERS SQUIBB COMPANY-BMS-2021-121739

PATIENT
  Age: 7 Decade
  Sex: Female

DRUGS (3)
  1. YERVOY [Suspect]
     Active Substance: IPILIMUMAB
     Indication: Metastatic renal cell carcinoma
     Dosage: UNKNOWN
     Route: 041
  2. OPDIVO [Suspect]
     Active Substance: NIVOLUMAB
     Indication: Metastatic renal cell carcinoma
     Dosage: UNKNOWN
     Route: 041
  3. PAZOPANIB [Suspect]
     Active Substance: PAZOPANIB
     Indication: Metastatic renal cell carcinoma
     Dosage: UNKNOWN
     Route: 065

REACTIONS (5)
  - Secondary adrenocortical insufficiency [Unknown]
  - Primary hypothyroidism [Recovering/Resolving]
  - Malignant neoplasm progression [Unknown]
  - Drug-induced liver injury [Recovering/Resolving]
  - Immune-mediated enterocolitis [Recovering/Resolving]
